FAERS Safety Report 5130374-8 (Version None)
Quarter: 2006Q4

REPORT INFORMATION
  Report Type: 
  Country: None (occurrence: None)
  Receive Date: 20061019
  Receipt Date: 20060621
  Transmission Date: 20070319
  Serious: Yes (Life-Threatening)
  Sender: FDA-Public Use
  Company Number: JP-BAYER-200610826BYL

PATIENT
  Age: 70 Year
  Sex: Male
  Weight: 52 kg

DRUGS (11)
  1. CIPROXAN-I.V [Suspect]
     Indication: PNEUMONIA
     Dosage: TOTAL DAILY DOSE: 600 MG  UNIT DOSE: 300 MG
     Route: 041
     Dates: start: 20060602, end: 20060612
  2. BLOPRESS [Concomitant]
     Indication: HYPERTENSION
     Dosage: TOTAL DAILY DOSE: 4 MG  UNIT DOSE: 4 MG
     Route: 048
     Dates: start: 20020101
  3. ASPIRIN [Concomitant]
     Indication: HYPERTENSION
     Dosage: TOTAL DAILY DOSE: 100 MG  UNIT DOSE: 100 MG
     Route: 048
     Dates: start: 20020101
  4. TIENAM [Concomitant]
     Indication: PNEUMONIA
     Dosage: TOTAL DAILY DOSE: 1 G  UNIT DOSE: 0.5 G
     Route: 048
     Dates: start: 20060603, end: 20060612
  5. NEU-UP [Concomitant]
     Indication: NEUTROPENIA
     Dosage: TOTAL DAILY DOSE: 100 ?G  UNIT DOSE: 100 ?G
     Route: 058
     Dates: start: 20060602, end: 20060609
  6. DECADRON [Concomitant]
     Indication: CHEMOTHERAPY
     Dosage: TOTAL DAILY DOSE: 20 MG
     Route: 042
     Dates: start: 20060529, end: 20060530
  7. NASEA [Concomitant]
     Indication: CHEMOTHERAPY
     Dosage: TOTAL DAILY DOSE: 0.3 MG  UNIT DOSE: 0.3 MG
     Route: 041
     Dates: start: 20060530, end: 20060530
  8. FAMOTIDINE [Concomitant]
     Indication: CHEMOTHERAPY
     Dosage: TOTAL DAILY DOSE: 20 MG  UNIT DOSE: 20 MG
     Route: 042
     Dates: start: 20060530, end: 20060530
  9. TAXOL [Concomitant]
     Indication: CHEMOTHERAPY
     Dosage: TOTAL DAILY DOSE: 315 MG
     Route: 041
     Dates: start: 20060530, end: 20060530
  10. PARAPLATIN [Concomitant]
     Indication: CHEMOTHERAPY
     Dosage: TOTAL DAILY DOSE: 750 MG
     Route: 041
     Dates: start: 20060530, end: 20060530
  11. MAXIPIME [Concomitant]
     Indication: FEBRILE NEUTROPENIA
     Dosage: TOTAL DAILY DOSE: 2 G  UNIT DOSE: 1 G
     Route: 041
     Dates: start: 20060601, end: 20060602

REACTIONS (2)
  - INTERSTITIAL LUNG DISEASE [None]
  - PLEURAL EFFUSION [None]
